FAERS Safety Report 6539077-6 (Version None)
Quarter: 2010Q1

REPORT INFORMATION
  Report Type: 
  Country: None (occurrence: None)
  Receive Date: 20100115
  Receipt Date: 20100106
  Transmission Date: 20100710
  Serious: Yes (Death, Other)
  Sender: FDA-Public Use
  Company Number: PHHY2009JP47131

PATIENT
  Sex: Female
  Weight: 56 kg

DRUGS (10)
  1. DIOVAN [Suspect]
     Dosage: 80 MG, QD
     Route: 048
     Dates: start: 20080107
  2. LASIX [Concomitant]
     Indication: HYPERTENSION
     Dosage: 80 MG
     Route: 048
     Dates: start: 20071221
  3. ARTIST [Concomitant]
     Indication: HYPERTENSION
     Dosage: 5 MG
     Route: 048
     Dates: start: 20071221
  4. ALDACTONE [Concomitant]
     Indication: HYPERTENSION
     Dosage: 25 MG
     Route: 048
     Dates: start: 20071221
  5. TAKEPRON [Concomitant]
     Dosage: 15 MG
     Route: 048
     Dates: start: 20071221, end: 20071229
  6. ACARDI [Concomitant]
     Dosage: 5 MG
     Route: 048
     Dates: start: 20071221
  7. ZYLORIC [Concomitant]
     Dosage: 100 MG
     Route: 048
  8. FRANDOL [Concomitant]
     Dosage: 40 MG
     Route: 062
     Dates: start: 20081002
  9. DIGOXIN [Concomitant]
     Dosage: 0.125 MG
     Route: 048
     Dates: start: 20081005
  10. PROTECADIN [Concomitant]
     Dosage: 10 MG
     Route: 048
     Dates: start: 20071029

REACTIONS (8)
  - BLOOD CREATININE INCREASED [None]
  - BLOOD GLUCOSE INCREASED [None]
  - BLOOD POTASSIUM INCREASED [None]
  - BLOOD PRESSURE DECREASED [None]
  - BLOOD UREA INCREASED [None]
  - CARDIO-RESPIRATORY ARREST [None]
  - HYPERTENSIVE HEART DISEASE [None]
  - HYPERURICAEMIA [None]
